FAERS Safety Report 23578001 (Version 2)
Quarter: 2024Q1

REPORT INFORMATION
  Report Type: Report from Study
  Country: DE (occurrence: DE)
  Receive Date: 20240229
  Receipt Date: 20240307
  Transmission Date: 20240410
  Serious: Yes (Hospitalization, Other)
  Sender: FDA-Public Use
  Company Number: DE-JNJFOC-20240259918

PATIENT
  Age: 9 Decade
  Sex: Female
  Weight: 62 kg

DRUGS (2)
  1. BORTEZOMIB [Suspect]
     Active Substance: BORTEZOMIB
     Indication: Plasma cell myeloma
     Dosage: 2.2 MILLIGRAM
     Route: 065
     Dates: start: 20220902, end: 20240126
  2. DARATUMUMAB [Suspect]
     Active Substance: DARATUMUMAB
     Indication: Plasma cell myeloma
     Dosage: 992 MILLIGRAM
     Route: 042
     Dates: start: 20221013, end: 20240126

REACTIONS (2)
  - Infective exacerbation of chronic obstructive airways disease [Recovered/Resolved with Sequelae]
  - Pneumonia [Recovered/Resolved with Sequelae]

NARRATIVE: CASE EVENT DATE: 20240203
